FAERS Safety Report 7556654-4 (Version None)
Quarter: 2011Q2

REPORT INFORMATION
  Report Type: 
  Country: None (occurrence: None)
  Receive Date: 20110620
  Receipt Date: 20110609
  Transmission Date: 20111010
  Serious: Yes (Life-Threatening, Hospitalization)
  Sender: FDA-Public Use
  Company Number: FR-BRISTOL-MYERS SQUIBB COMPANY-15841208

PATIENT
  Age: 83 Year
  Sex: Female

DRUGS (9)
  1. LASIX [Concomitant]
  2. DESLORATADINE [Concomitant]
  3. OMEPRAZOLE [Concomitant]
  4. GLUCOPHAGE [Suspect]
     Indication: DIABETES MELLITUS
     Route: 048
  5. LEVOTHYROXINE SODIUM [Concomitant]
  6. ASPIRIN [Concomitant]
  7. COZAAR [Concomitant]
  8. AMLODIPINE [Concomitant]
  9. NEBIVOLOL HCL [Concomitant]

REACTIONS (1)
  - RENAL FAILURE ACUTE [None]
